FAERS Safety Report 4597469-9 (Version None)
Quarter: 2005Q1

REPORT INFORMATION
  Report Type: 
  Country: None (occurrence: None)
  Receive Date: 20050303
  Receipt Date: 20050221
  Transmission Date: 20050727
  Serious: Yes (Death, Hospitalization)
  Sender: FDA-Public Use
  Company Number: JP-JNJFOC-20041202094

PATIENT
  Sex: Female

DRUGS (19)
  1. DUROTEP [Suspect]
     Indication: CANCER PAIN
     Route: 062
     Dates: start: 20040829, end: 20040909
  2. RISPERDAL [Concomitant]
     Indication: DELIRIUM
     Route: 049
     Dates: start: 20040825, end: 20040906
  3. MORPHINE HYDROCHLORIDE [Concomitant]
     Route: 049
     Dates: start: 20040831, end: 20040902
  4. MORPHINE HYDROCHLORIDE [Concomitant]
     Route: 049
     Dates: start: 20040831, end: 20040902
  5. MORPHINE HYDROCHLORIDE [Concomitant]
     Indication: CANCER PAIN
     Route: 049
     Dates: start: 20040831, end: 20040902
  6. ZALTOPROFEN [Concomitant]
     Indication: CANCER PAIN
     Route: 049
     Dates: start: 20040825, end: 20040905
  7. SENNOSIDE [Concomitant]
     Indication: CONSTIPATION
     Dosage: 1-2 DOSAGE FORM/DAY
     Route: 049
     Dates: start: 20040825, end: 20040904
  8. MAGNESIUM OXIDE [Concomitant]
     Indication: CONSTIPATION
     Dosage: 0.5 - 1.5 G/DAY
     Route: 049
     Dates: start: 20040825, end: 20040829
  9. RABEPRAZOLE SODIUM [Concomitant]
     Route: 049
     Dates: start: 20040825, end: 20040905
  10. SODIUM PICOSULFATE [Concomitant]
     Indication: CONSTIPATION
     Dosage: 5-15 MG/DAY
     Route: 049
     Dates: start: 20040827, end: 20040907
  11. MORPHINE HYDROCHLORIDE [Concomitant]
     Route: 058
     Dates: start: 20040903, end: 20040909
  12. MORPHINE HYDROCHLORIDE [Concomitant]
     Route: 058
     Dates: start: 20040903, end: 20040909
  13. MORPHINE HYDROCHLORIDE [Concomitant]
     Route: 058
     Dates: start: 20040903, end: 20040909
  14. MORPHINE HYDROCHLORIDE [Concomitant]
     Route: 065
     Dates: start: 20040904, end: 20040908
  15. MORPHINE HYDROCHLORIDE [Concomitant]
     Route: 065
     Dates: start: 20040904, end: 20040908
  16. MORPHINE HYDROCHLORIDE [Concomitant]
     Route: 065
     Dates: start: 20040904, end: 20040908
  17. MORPHINE HYDROCHLORIDE [Concomitant]
     Route: 065
     Dates: start: 20040904, end: 20040908
  18. MORPHINE HYDROCHLORIDE [Concomitant]
     Route: 065
     Dates: start: 20040904, end: 20040908
  19. MORPHINE SULFATE [Concomitant]
     Indication: CANCER PAIN
     Route: 049
     Dates: start: 20040902, end: 20040903

REACTIONS (7)
  - CONSTIPATION [None]
  - DELIRIUM [None]
  - DYSPNOEA EXACERBATED [None]
  - PAIN [None]
  - RESPIRATORY FAILURE [None]
  - SMALL INTESTINE CARCINOMA [None]
  - SOMNOLENCE [None]
